FAERS Safety Report 5952292-5 (Version None)
Quarter: 2008Q4

REPORT INFORMATION
  Report Type: 
  Country: None (occurrence: None)
  Receive Date: 20081022
  Receipt Date: 20080814
  Transmission Date: 20090506
  Serious: No
  Sender: FDA-Public Use
  Company Number: SPV1-2008-01744

PATIENT
  Age: 20 Year
  Sex: Male

DRUGS (1)
  1. VYVANSE [Suspect]
     Dosage: 30 MG, ORAL
     Route: 048
     Dates: start: 20080809

REACTIONS (2)
  - DYSPNOEA [None]
  - HEART RATE INCREASED [None]
